FAERS Safety Report 21183536 (Version 1)
Quarter: 2022Q3

REPORT INFORMATION
  Report Type: Spontaneous
  Country: US (occurrence: US)
  Receive Date: 20220808
  Receipt Date: 20220808
  Transmission Date: 20221027
  Serious: No
  Sender: FDA-Public Use
  Company Number: US-ORGANON-O2207USA002109

PATIENT
  Age: 56 Year
  Sex: Female
  Weight: 54.422 kg

DRUGS (1)
  1. MAXALT [Suspect]
     Active Substance: RIZATRIPTAN BENZOATE
     Indication: Migraine
     Dosage: UNK UNK, ONCE
     Route: 048

REACTIONS (7)
  - Pruritus [Unknown]
  - Urticaria [Unknown]
  - Skin discolouration [Unknown]
  - Rash [Unknown]
  - Malaise [Unknown]
  - Hangover [Unknown]
  - Drug ineffective [Unknown]
